FAERS Safety Report 20602948 (Version 2)
Quarter: 2022Q2

REPORT INFORMATION
  Report Type: Report from Study
  Country: US (occurrence: US)
  Receive Date: 20220316
  Receipt Date: 20220414
  Transmission Date: 20220721
  Serious: Yes (Other)
  Sender: FDA-Public Use
  Company Number: US-GILEAD-2022-0573821

PATIENT
  Sex: Male

DRUGS (2)
  1. IDELALISIB [Suspect]
     Active Substance: IDELALISIB
     Indication: Follicular lymphoma
     Dosage: 100 MG, QD
     Route: 048
     Dates: start: 20201022
  2. IDELALISIB [Suspect]
     Active Substance: IDELALISIB
     Dosage: 100 UNK
     Route: 048
     Dates: start: 20200608

REACTIONS (3)
  - Prostate cancer [Unknown]
  - Unevaluable investigation [Unknown]
  - Off label use [Recovered/Resolved]
